FAERS Safety Report 20993951 (Version 1)
Quarter: 2022Q2

REPORT INFORMATION
  Report Type: Report from Study
  Country: US (occurrence: US)
  Receive Date: 20220622
  Receipt Date: 20220622
  Transmission Date: 20220720
  Serious: Yes (Other)
  Sender: FDA-Public Use
  Company Number: US-UCBSA-2022021769

PATIENT
  Sex: Male
  Weight: 109 kg

DRUGS (2)
  1. CERTOLIZUMAB PEGOL [Suspect]
     Active Substance: CERTOLIZUMAB PEGOL
     Indication: Psoriatic arthropathy
     Dosage: 400 MILLIGRAM, EV 2 WEEKS(QOW)
     Dates: start: 20220406, end: 20220504
  2. CERTOLIZUMAB PEGOL [Suspect]
     Active Substance: CERTOLIZUMAB PEGOL
     Dosage: 200 MILLIGRAM, EV 2 WEEKS(QOW)
     Dates: start: 202205

REACTIONS (9)
  - Psoriasis [Recovered/Resolved]
  - Injection site pain [Recovered/Resolved]
  - Injection site mass [Recovered/Resolved]
  - Rash [Recovering/Resolving]
  - Injection site swelling [Unknown]
  - Injection site erythema [Recovered/Resolved]
  - Burning sensation [Unknown]
  - Acne [Not Recovered/Not Resolved]
  - Headache [Recovered/Resolved]

NARRATIVE: CASE EVENT DATE: 20220101
